FAERS Safety Report 17611386 (Version 1)
Quarter: 2020Q2

REPORT INFORMATION
  Report Type: Spontaneous
  Country: CN (occurrence: CN)
  Receive Date: 20200401
  Receipt Date: 20200401
  Transmission Date: 20200713
  Serious: Yes (Hospitalization, Other)
  Sender: FDA-Public Use
  Company Number: CN-ROCHE-2572166

PATIENT
  Age: 39 Year
  Sex: Male

DRUGS (6)
  1. EPIRUBICIN [Concomitant]
     Active Substance: EPIRUBICIN
     Route: 065
     Dates: start: 20190108
  2. CYCLOPHOSPHAMIDE. [Concomitant]
     Active Substance: CYCLOPHOSPHAMIDE
  3. VINDESINE SULFATE [Concomitant]
     Active Substance: VINDESINE SULFATE
  4. PREDNISOLONE. [Concomitant]
     Active Substance: PREDNISOLONE
  5. MABTHERA [Suspect]
     Active Substance: RITUXIMAB
     Indication: DIFFUSE LARGE B-CELL LYMPHOMA
     Route: 065
     Dates: start: 20181126
  6. EPIRUBICIN [Concomitant]
     Active Substance: EPIRUBICIN
     Indication: DIFFUSE LARGE B-CELL LYMPHOMA
     Route: 065
     Dates: start: 20181126

REACTIONS (8)
  - Frequent bowel movements [Unknown]
  - Platelet count decreased [Unknown]
  - Enterocolonic fistula [Unknown]
  - Weight decreased [Unknown]
  - Large intestine perforation [Unknown]
  - Haemoglobin decreased [Unknown]
  - White blood cell count decreased [Unknown]
  - Intestinal obstruction [Unknown]
